FAERS Safety Report 21654158 (Version 2)
Quarter: 2024Q1

REPORT INFORMATION
  Report Type: Report from Study
  Country: CA (occurrence: CA)
  Receive Date: 20221129
  Receipt Date: 20240212
  Transmission Date: 20240409
  Serious: Yes (Other)
  Sender: FDA-Public Use
  Company Number: CA-JNJFOC-20221157121

PATIENT
  Age: 50 Year
  Sex: Male

DRUGS (1)
  1. REMICADE [Suspect]
     Active Substance: INFLIXIMAB
     Indication: Crohn^s disease
     Route: 041
     Dates: start: 20070910

REACTIONS (3)
  - Ophthalmic herpes zoster [Unknown]
  - Blindness [Unknown]
  - Herpes zoster [Unknown]

NARRATIVE: CASE EVENT DATE: 20220101
